FAERS Safety Report 9498855 (Version 3)
Quarter: 2013Q3

REPORT INFORMATION
  Report Type: Spontaneous
  Country: SE (occurrence: SE)
  Receive Date: 20130904
  Receipt Date: 20130912
  Transmission Date: 20140515
  Serious: Yes (Other)
  Sender: FDA-Public Use
  Company Number: SE-ROCHE-1269382

PATIENT
  Sex: 0

DRUGS (2)
  1. XOLAIR [Suspect]
     Indication: HYPERSENSITIVITY
     Route: 065
  2. XOLAIR [Suspect]
     Indication: OFF LABEL USE

REACTIONS (1)
  - Hypersensitivity [Unknown]
